FAERS Safety Report 8772129 (Version 2)
Quarter: 2013Q1

REPORT INFORMATION
  Report Type: Spontaneous
  Country: US (occurrence: US)
  Receive Date: 20120906
  Receipt Date: 20130111
  Transmission Date: 20140127
  Serious: Yes (Disabling)
  Sender: FDA-Public Use
  Company Number: US-009507513-2012SP005291

PATIENT
  Age: 36 Year
  Sex: Female
  Weight: 94.8 kg

DRUGS (6)
  1. NUVARING [Suspect]
     Indication: CONTRACEPTION
     Dosage: 0.12 MG-0.015 MG/3 WEEKS IN ONE WEEK OUT PER MONTH, 0.12-0.015 MG/ 24 HR
     Route: 067
     Dates: start: 200909, end: 20120127
  2. PAXIL [Concomitant]
     Indication: PRODUCT USED FOR UNKNOWN INDICATION
  3. PRILOSEC [Concomitant]
     Indication: PRODUCT USED FOR UNKNOWN INDICATION
  4. ASCORBIC ACID [Concomitant]
     Indication: PRODUCT USED FOR UNKNOWN INDICATION
  5. THIAMINE HYDROCHLORIDE [Concomitant]
     Indication: PRODUCT USED FOR UNKNOWN INDICATION
  6. KLONOPIN [Concomitant]
     Indication: PRODUCT USED FOR UNKNOWN INDICATION
     Dosage: UNK UNK, PRN

REACTIONS (7)
  - Optic neuritis [Recovering/Resolving]
  - Clinically isolated syndrome [Unknown]
  - Intervertebral disc degeneration [Unknown]
  - Vitamin B12 deficiency [Unknown]
  - Vitamin D deficiency [Unknown]
  - Rash [Unknown]
  - Arthralgia [Unknown]
